FAERS Safety Report 4837946-6 (Version None)
Quarter: 2005Q4

REPORT INFORMATION
  Report Type: 
  Country: None (occurrence: None)
  Receive Date: 20051128
  Receipt Date: 20051115
  Transmission Date: 20060501
  Serious: Yes (Hospitalization)
  Sender: FDA-Public Use
  Company Number: HU-ROCHE-424837

PATIENT
  Age: 59 Year
  Sex: Male

DRUGS (1)
  1. MEFLOQUINE HCL [Suspect]
     Indication: MALARIA PROPHYLAXIS
     Dosage: TOTAL DOSE REPORTED AS 2 TABLETS ( 1 TABLET = 250 MG OF ACTIVE SUBSTANCE).
     Route: 065

REACTIONS (3)
  - ANXIETY [None]
  - HALLUCINATION, AUDITORY [None]
  - PERSECUTORY DELUSION [None]
